FAERS Safety Report 8386409-2 (Version None)
Quarter: 2012Q2

REPORT INFORMATION
  Report Type: 
  Country: None (occurrence: None)
  Receive Date: 20120525
  Receipt Date: 20120518
  Transmission Date: 20120825
  Serious: Yes (Hospitalization, Other)
  Sender: FDA-Public Use
  Company Number: JP-PFIZER INC-2012101824

PATIENT
  Age: 75 Year
  Sex: Female
  Weight: 37 kg

DRUGS (8)
  1. ZOSYN [Suspect]
     Indication: FEBRILE NEUTROPENIA
     Dosage: 18 G, (4.5 G X4/DAY, INITIAL  1 DOSE/DAY)
     Route: 041
     Dates: start: 20120416, end: 20120420
  2. ALOSENN [Concomitant]
     Indication: CONSTIPATION
     Dosage: UNK
     Route: 048
  3. LANSOPRAZOLE [Concomitant]
     Indication: GASTROOESOPHAGEAL REFLUX DISEASE
     Dosage: 15 MG, 1X/DAY
     Route: 048
  4. AMLODIPINE [Concomitant]
     Indication: HYPERTENSION
     Dosage: 2.5 MG, 1X/DAY
     Route: 048
  5. ZOLPIDEM [Concomitant]
     Indication: INSOMNIA
     Dosage: UNK
     Route: 048
  6. MAGMITT [Concomitant]
     Indication: CONSTIPATION
     Dosage: 990 MG, 1X/DAY
     Route: 048
  7. LOXONIN [Concomitant]
     Indication: PYREXIA
     Dosage: UNK
     Route: 048
  8. OLMESARTAN MEDOXOMIL [Concomitant]
     Indication: HYPERTENSION
     Dosage: 40 MG, 1X/DAY
     Route: 048

REACTIONS (2)
  - INTERSTITIAL LUNG DISEASE [None]
  - HYPOKALAEMIA [None]
